FAERS Safety Report 25058890 (Version 1)
Quarter: 2025Q1

REPORT INFORMATION
  Report Type: Spontaneous
  Country: IT (occurrence: IT)
  Receive Date: 20250310
  Receipt Date: 20250310
  Transmission Date: 20250409
  Serious: Yes (Death)
  Sender: MYLAN
  Company Number: IT-MYLANLABS-2025M1019775

PATIENT
  Age: 43 Year
  Sex: Female

DRUGS (10)
  1. OXALIPLATIN [Suspect]
     Active Substance: OXALIPLATIN
     Indication: Gastrointestinal adenocarcinoma
  2. FLUOROURACIL [Suspect]
     Active Substance: FLUOROURACIL
     Indication: Gastrointestinal adenocarcinoma
  3. FLUOROURACIL [Suspect]
     Active Substance: FLUOROURACIL
  4. FLUOROURACIL [Suspect]
     Active Substance: FLUOROURACIL
  5. IRINOTECAN [Suspect]
     Active Substance: IRINOTECAN
     Indication: Gastrointestinal adenocarcinoma
  6. LEUCOVORIN [Suspect]
     Active Substance: LEUCOVORIN\LEUCOVORIN CALCIUM
     Indication: Gastrointestinal adenocarcinoma
  7. LEUCOVORIN [Suspect]
     Active Substance: LEUCOVORIN\LEUCOVORIN CALCIUM
  8. BEVACIZUMAB [Suspect]
     Active Substance: BEVACIZUMAB
     Indication: Gastrointestinal adenocarcinoma
  9. BEVACIZUMAB [Suspect]
     Active Substance: BEVACIZUMAB
  10. AFLIBERCEPT [Suspect]
     Active Substance: AFLIBERCEPT
     Indication: Gastrointestinal adenocarcinoma

REACTIONS (2)
  - Disease progression [Fatal]
  - Drug ineffective [Fatal]
